APPROVED DRUG PRODUCT: ESTRADERM
Active Ingredient: ESTRADIOL
Strength: 0.1MG/24HR
Dosage Form/Route: SYSTEM;TRANSDERMAL
Application: N019081 | Product #003
Applicant: NOVARTIS PHARMACEUTICALS CORP
Approved: Sep 10, 1986 | RLD: Yes | RS: No | Type: DISCN